FAERS Safety Report 5759037-2 (Version None)
Quarter: 2008Q2

REPORT INFORMATION
  Report Type: 
  Country: None (occurrence: None)
  Receive Date: 20080602
  Receipt Date: 20080523
  Transmission Date: 20081010
  Serious: Yes (Death)
  Sender: FDA-Public Use
  Company Number: 008-20785-08051512

PATIENT
  Age: 75 Year
  Sex: Male

DRUGS (6)
  1. THALOMID [Suspect]
     Indication: CHRONIC LYMPHOCYTIC LEUKAEMIA
     Dosage: ORAL
     Route: 048
  2. METHYLPREDNISOLONE [Suspect]
     Indication: CHRONIC LYMPHOCYTIC LEUKAEMIA
  3. RITUXAN [Suspect]
     Indication: DRUG USE FOR UNKNOWN INDICATION
  4. FLUCONAZOLE [Concomitant]
  5. VINCA ALKALOIDS (ALKALOIDS, EXCL RAUWOLFIA) [Concomitant]
  6. CYCLOPHOSPHAMIDE [Concomitant]

REACTIONS (4)
  - ASPERGILLOSIS [None]
  - CONFUSIONAL STATE [None]
  - NEUTROPENIA [None]
  - RESPIRATORY FAILURE [None]
